FAERS Safety Report 19853992 (Version 3)
Quarter: 2021Q4

REPORT INFORMATION
  Report Type: Report from Study
  Country: US (occurrence: US)
  Receive Date: 20210920
  Receipt Date: 20211008
  Transmission Date: 20220303
  Serious: No
  Sender: FDA-Public Use
  Company Number: NVSC2021US212622

PATIENT
  Sex: Female
  Weight: 61.22 kg

DRUGS (3)
  1. TREPROSTINIL [Suspect]
     Active Substance: TREPROSTINIL
     Indication: Pulmonary arterial hypertension
     Dosage: 50 NG, CONT (UNITS: NG/KG/MIN)
     Route: 058
     Dates: start: 20210729
  2. TREPROSTINIL [Suspect]
     Active Substance: TREPROSTINIL
     Dosage: UNK (DOSE INCREASES BY 2 NG/KG/MIN TWICE A WEEK FOR 3 INCREASES)
     Route: 065
  3. SILDENAFIL CITRATE [Concomitant]
     Active Substance: SILDENAFIL CITRATE
     Indication: Product used for unknown indication
     Dosage: UNK
     Route: 065

REACTIONS (7)
  - Malaise [Unknown]
  - Muscle spasms [Unknown]
  - Pain in jaw [Unknown]
  - Dizziness [Unknown]
  - Dyspnoea [Unknown]
  - Diarrhoea [Unknown]
  - Chest pain [Unknown]
